FAERS Safety Report 24631152 (Version 1)
Quarter: 2024Q4

REPORT INFORMATION
  Report Type: Spontaneous
  Country: CN (occurrence: CN)
  Receive Date: 20241118
  Receipt Date: 20241118
  Transmission Date: 20250115
  Serious: Yes (Other)
  Sender: EISAI
  Company Number: CN-Eisai-EC-2024-178400

PATIENT
  Age: 45 Year
  Sex: Female
  Weight: 63.5 kg

DRUGS (2)
  1. ERIBULIN [Suspect]
     Active Substance: ERIBULIN
     Indication: Breast cancer
     Dosage: DOSE AND FREQUENCY WERE UNKNOWN.??ON 27/OCT/2024: THE FIFTH COURSE OF D8 CHEMOTHERAPY WITH ERIBULIN
     Route: 042
  2. ERIBULIN [Suspect]
     Active Substance: ERIBULIN
     Dosage: THE FIFTH COURSE OF D8 CHEMOTHERAPY WITH ERIBULIN 2.3MG ADMINISTERED.
     Route: 042
     Dates: start: 20241027

REACTIONS (1)
  - Agranulocytosis [Unknown]

NARRATIVE: CASE EVENT DATE: 20241030
